FAERS Safety Report 6888096-9 (Version None)
Quarter: 2010Q3

REPORT INFORMATION
  Report Type: 
  Country: None (occurrence: None)
  Receive Date: 20100727
  Receipt Date: 20100719
  Transmission Date: 20110219
  Serious: Yes (Life-Threatening, Hospitalization)
  Sender: FDA-Public Use
  Company Number: 2010SP039562

PATIENT
  Age: 86 Year
  Sex: Female

DRUGS (9)
  1. MIRTAZAPINE [Suspect]
     Indication: DEPRESSION
     Dosage: 15 MG; QD; PO
     Route: 048
     Dates: start: 20100228, end: 20100428
  2. CLOZAPINE [Suspect]
     Indication: HALLUCINATION
     Dosage: 18.75 MG; QD; PO
     Route: 048
     Dates: start: 20100228, end: 20100502
  3. ATENOLOL [Concomitant]
  4. LACTULOSE [Concomitant]
  5. ZOPICLON [Concomitant]
  6. XIPAMID [Concomitant]
  7. TIAPRIDAL [Concomitant]
  8. PANTOZOL [Concomitant]
  9. EXELON [Concomitant]

REACTIONS (5)
  - AGRANULOCYTOSIS [None]
  - BRONCHOPNEUMONIA [None]
  - GENERAL PHYSICAL HEALTH DETERIORATION [None]
  - RENAL FAILURE [None]
  - SEPSIS [None]
